FAERS Safety Report 12353084 (Version 1)
Quarter: 2016Q2

REPORT INFORMATION
  Report Type: Spontaneous
  Country: US (occurrence: US)
  Receive Date: 20160510
  Receipt Date: 20160510
  Transmission Date: 20160815
  Serious: Yes (Life-Threatening, Other)
  Sender: FDA-Public Use
  Company Number: US-ALLERGAN-1656168US

PATIENT
  Age: 58 Year
  Sex: Female

DRUGS (1)
  1. IRON DEXTRAN UNK [Suspect]
     Active Substance: IRON DEXTRAN
     Indication: IRON DEFICIENCY ANAEMIA
     Route: 042

REACTIONS (2)
  - Anaphylactic reaction [Unknown]
  - Haemolytic transfusion reaction [Unknown]
